FAERS Safety Report 10642552 (Version 2)
Quarter: 2014Q4

REPORT INFORMATION
  Report Type: Spontaneous
  Country: US (occurrence: US)
  Receive Date: 20141210
  Receipt Date: 20141218
  Transmission Date: 20150529
  Serious: Yes (Other)
  Sender: FDA-Public Use
  Company Number: CHPA2014US016156

PATIENT
  Age: 58 Year
  Sex: Female

DRUGS (5)
  1. VOLTAREN [Suspect]
     Active Substance: DICLOFENAC SODIUM
     Indication: ARTHRITIS
     Dosage: 4 G, TID
     Route: 061
     Dates: start: 201411, end: 20141201
  2. VOLTAREN [Suspect]
     Active Substance: DICLOFENAC SODIUM
     Indication: ARTHRALGIA
     Dosage: 4 G, TID
     Route: 061
     Dates: start: 20121019
  3. VOLTAREN [Suspect]
     Active Substance: DICLOFENAC SODIUM
     Indication: OFF LABEL USE
  4. NAPROXEN TABLETS USP [Suspect]
     Active Substance: NAPROXEN
     Indication: ARTHRITIS
     Dosage: 1 DF, BID
     Route: 048
     Dates: start: 2009, end: 20141130
  5. NAPROXEN TABLETS USP [Suspect]
     Active Substance: NAPROXEN
     Indication: ARTHRALGIA

REACTIONS (7)
  - Meniscus injury [Recovering/Resolving]
  - Oral mucosal blistering [Recovering/Resolving]
  - Drug administration error [Unknown]
  - Glossodynia [Recovering/Resolving]
  - Arthralgia [Not Recovered/Not Resolved]
  - Inappropriate schedule of drug administration [Unknown]
  - Ligament sprain [Recovering/Resolving]

NARRATIVE: CASE EVENT DATE: 201411
